FAERS Safety Report 5823855-2 (Version None)
Quarter: 2008Q3

REPORT INFORMATION
  Report Type: 
  Country: None (occurrence: None)
  Receive Date: 20080725
  Receipt Date: 20080716
  Transmission Date: 20090109
  Serious: Yes (Life-Threatening, Other)
  Sender: FDA-Public Use
  Company Number: US-GENENTECH-264263

PATIENT
  Sex: Female

DRUGS (4)
  1. HUMATROPE [Suspect]
     Indication: GROWTH HORMONE DEFICIENCY
     Dosage: 0.2 MG, QD
     Route: 058
  2. CORTEF [Concomitant]
     Indication: DRUG USE FOR UNKNOWN INDICATION
  3. MORPHINE [Concomitant]
     Indication: PAIN
  4. IMMUNE GLOBULIN INTRAVENOUS (HUMAN) [Concomitant]
     Indication: DEMYELINATING POLYNEUROPATHY
     Route: 042

REACTIONS (1)
  - ADRENAL INSUFFICIENCY [None]
